FAERS Safety Report 5717530-2 (Version None)
Quarter: 2008Q2

REPORT INFORMATION
  Report Type: 
  Country: None (occurrence: None)
  Receive Date: 20080425
  Receipt Date: 20080417
  Transmission Date: 20081010
  Serious: Yes (Hospitalization)
  Sender: FDA-Public Use
  Company Number: US-BAYER-200820366NA

PATIENT
  Age: 64 Year
  Sex: Female

DRUGS (1)
  1. LEUKINE [Suspect]
     Indication: BREAST CANCER
     Route: 058
     Dates: start: 20080127, end: 20080127

REACTIONS (1)
  - SYNCOPE [None]
